FAERS Safety Report 6713009-X (Version None)
Quarter: 2010Q2

REPORT INFORMATION
  Report Type: 
  Country: None (occurrence: None)
  Receive Date: 20100506
  Receipt Date: 20100426
  Transmission Date: 20101027
  Serious: Yes (Other)
  Sender: FDA-Public Use
  Company Number: US-SANOFI-AVENTIS-2010SA024328

PATIENT
  Age: 81 Year
  Sex: Female

DRUGS (17)
  1. MULTAQ [Suspect]
     Indication: ATRIAL FIBRILLATION
     Route: 048
     Dates: start: 20091101
  2. MULTAQ [Suspect]
     Route: 048
     Dates: start: 20100101
  3. MULTAQ [Suspect]
     Route: 048
     Dates: start: 20100301
  4. CIPROFLOXACIN [Suspect]
     Indication: URINARY TRACT INFECTION
     Route: 065
  5. COUMADIN [Concomitant]
  6. VALSARTAN [Concomitant]
     Indication: HYPERTENSION
  7. HYDROCHLOROTHIAZIDE [Concomitant]
     Indication: HYPERTENSION
  8. LOPRESSOR [Concomitant]
     Indication: HYPERTENSION
  9. COUMADIN [Concomitant]
     Dosage: FOR 6 DAYS WITH ONE DAY OFF
  10. TYLENOL-500 [Concomitant]
  11. PERCOCET [Concomitant]
     Indication: NECK PAIN
  12. ALLEGRA [Concomitant]
     Indication: SEASONAL ALLERGY
  13. ESOMEPRAZOLE [Concomitant]
  14. SIMVASTATIN [Concomitant]
  15. VITAMIN D [Concomitant]
  16. CALCIUM [Concomitant]
  17. MULTI-VITAMINS [Concomitant]

REACTIONS (7)
  - ASTHENIA [None]
  - ATRIAL FIBRILLATION [None]
  - DIARRHOEA [None]
  - DIZZINESS [None]
  - HEADACHE [None]
  - INCORRECT DOSE ADMINISTERED [None]
  - NAUSEA [None]
